FAERS Safety Report 10094127 (Version 2)
Quarter: 2014Q2

REPORT INFORMATION
  Report Type: Report from Study
  Country: DE (occurrence: DE)
  Receive Date: 20140422
  Receipt Date: 20140430
  Transmission Date: 20141212
  Serious: Yes (Hospitalization)
  Sender: FDA-Public Use
  Company Number: DE-009507513-1404DEU010404

PATIENT
  Age: 22 Year
  Sex: Female

DRUGS (2)
  1. BOCEPREVIR [Suspect]
     Indication: CHRONIC HEPATITIS C
     Dosage: UNK
     Route: 048
  2. HEMP [Concomitant]
     Dosage: UNK

REACTIONS (2)
  - Psychotic disorder [Recovered/Resolved]
  - Acute psychosis [Recovered/Resolved]
